FAERS Safety Report 9605124 (Version 2)
Quarter: 2013Q4

REPORT INFORMATION
  Report Type: Spontaneous
  Country: VN (occurrence: VN)
  Receive Date: 20131008
  Receipt Date: 20131011
  Transmission Date: 20140711
  Serious: Yes (Hospitalization)
  Sender: FDA-Public Use
  Company Number: VN-B.I. PHARMACEUTICALS,INC./RIDGEFIELD-2013-BI-31175VN

PATIENT
  Age: 68 Year
  Sex: Male

DRUGS (4)
  1. TRAJENTA [Suspect]
     Indication: TYPE 2 DIABETES MELLITUS
     Dosage: 5 MG
     Route: 048
  2. TELMISARTAN [Concomitant]
     Indication: BLOOD PRESSURE DECREASED
     Dosage: 40 MG
     Route: 048
  3. FUROSEMIDE [Concomitant]
     Indication: BLOOD PRESSURE DECREASED
     Dosage: 40 MG
     Route: 048
  4. CALCITRIOL [Concomitant]
     Indication: OSTEOPOROSIS

REACTIONS (1)
  - Hypoglycaemia [Recovered/Resolved]
